FAERS Safety Report 6796286-9 (Version None)
Quarter: 2010Q2

REPORT INFORMATION
  Report Type: 
  Country: None (occurrence: None)
  Receive Date: 20100624
  Receipt Date: 20100624
  Transmission Date: 20101027
  Serious: Yes (Other)
  Sender: FDA-Public Use
  Company Number: None

PATIENT
  Age: 56 Year
  Sex: Female

DRUGS (2)
  1. SULFAMETHOXAZOLE/TRIMETHOPRIM 800 MG/ 160 MG MUTUAL PHARMACUETICALS [Suspect]
     Indication: URINARY TRACT INFECTION
     Dosage: 800MG/160 MG TWICE A DAY PO
     Route: 048
     Dates: start: 20100622, end: 20100622
  2. SOTALOL 80 MG QUALITEST [Suspect]
     Indication: ATRIAL FIBRILLATION
     Dosage: 80 MG TWICE A DAY PO
     Route: 048
     Dates: start: 20100614, end: 20100623

REACTIONS (3)
  - ATRIAL FIBRILLATION [None]
  - DRUG INTERACTION [None]
  - EMOTIONAL DISORDER [None]
